FAERS Safety Report 5441928-3 (Version None)
Quarter: 2007Q3

REPORT INFORMATION
  Report Type: 
  Country: None (occurrence: None)
  Receive Date: 20070904
  Receipt Date: 20070831
  Transmission Date: 20080115
  Serious: Yes (Other)
  Sender: FDA-Public Use
  Company Number: BR-BRISTOL-MYERS SQUIBB COMPANY-13895693

PATIENT
  Age: 30 Year
  Sex: Female

DRUGS (1)
  1. COUMADIN [Suspect]
     Indication: THROMBOSIS
     Dosage: ALSO TAKEN FROM 2001 AS 5 MG, THEN 7.5 MG AND INCREASED TO 10 MG.
     Route: 048
     Dates: start: 20010101

REACTIONS (1)
  - INTERNATIONAL NORMALISED RATIO DECREASED [None]
